FAERS Safety Report 4634327-5 (Version None)
Quarter: 2005Q2

REPORT INFORMATION
  Report Type: 
  Country: None (occurrence: None)
  Receive Date: 20050413
  Receipt Date: 20050404
  Transmission Date: 20051028
  Serious: Yes (Other)
  Sender: FDA-Public Use
  Company Number: CA-ABBOTT-05P-028-0296266-00

PATIENT
  Age: 0 Day
  Sex: Female
  Weight: 2.815 kg

DRUGS (2)
  1. REMIFENTANIL [Suspect]
     Indication: DRUG EXPOSURE DURING PREGNANCY
     Route: 065
  2. REMIFENTANIL [Suspect]

REACTIONS (2)
  - HYPOTONIA [None]
  - OXYGEN SATURATION DECREASED [None]
